FAERS Safety Report 8583729-3 (Version None)
Quarter: 2012Q3

REPORT INFORMATION
  Report Type: 
  Country: None (occurrence: None)
  Receive Date: 20120810
  Receipt Date: 20120720
  Transmission Date: 20120928
  Serious: Yes (Other)
  Sender: FDA-Public Use
  Company Number: US-MERCK-2011SP037975

PATIENT

DRUGS (12)
  1. VICTRELIS [Suspect]
     Indication: FATIGUE
  2. RIBAVIRIN [Suspect]
     Indication: PRODUCT USED FOR UNKNOWN INDICATION
     Dosage: 600 MG EACH AM, 800 MG EACH PM
     Dates: start: 20110503, end: 20110715
  3. CENTRUM (MINERALS (UNSPECIFIED) (+) VITAMINS (UNSPECIFIED)) [Concomitant]
     Dosage: UNK
  4. LATANOPROST [Concomitant]
  5. VICTRELIS [Suspect]
     Indication: HEPATITIS C
     Dosage: 200 MG- 4 CAPS TID
     Route: 048
     Dates: start: 20110610, end: 20110715
  6. DIOVAN [Concomitant]
     Dosage: 80 MG, UNK
  7. HYDROCORTISONE [Concomitant]
     Dosage: 1 %, UNK
  8. VICTRELIS [Suspect]
     Indication: LABORATORY TEST ABNORMAL
  9. PEG-INTRON [Suspect]
     Indication: PRODUCT USED FOR UNKNOWN INDICATION
     Dosage: 150 MICROGRAM, QW
     Dates: start: 20110503, end: 20110715
  10. ANUSOL (BISMUTH SUBGALLATE (+) PRAMOXINE HYDROCHLORIDE) [Concomitant]
     Dosage: 2.5 %, UNK
  11. MIRALAX [Concomitant]
  12. SUPREP BOWEL PREP [Concomitant]

REACTIONS (1)
  - ANAEMIA [None]
